FAERS Safety Report 18451648 (Version 4)
Quarter: 2021Q3

REPORT INFORMATION
  Report Type: Report from Study
  Country: KR (occurrence: KR)
  Receive Date: 20201102
  Receipt Date: 20210922
  Transmission Date: 20211014
  Serious: Yes (Death, Other)
  Sender: FDA-Public Use
  Company Number: KR-GLAXOSMITHKLINE-KR2020213835

PATIENT
  Age: 52 Year
  Sex: Female

DRUGS (27)
  1. NIRAPARIB [Suspect]
     Active Substance: NIRAPARIB
     Indication: MALIGNANT PERITONEAL NEOPLASM
     Dosage: 20 MILLIGRAM, QD
     Route: 048
     Dates: start: 20200917, end: 20201012
  2. NIRAPARIB [Suspect]
     Active Substance: NIRAPARIB
     Indication: FALLOPIAN TUBE CANCER
  3. KEROMIN [Concomitant]
     Dosage: UNK
     Route: 042
     Dates: start: 20201009, end: 20201009
  4. XATRAL [Concomitant]
     Active Substance: ALFUZOSIN
     Indication: NEUROGENIC BLADDER
     Dosage: UNK UNK, QD
     Route: 048
     Dates: start: 10180823
  5. CITOPCIN (CIPROFLOXACIN HCL) [Concomitant]
     Indication: PROPHYLAXIS
     Dosage: 50 MILLILITER, BID
     Route: 042
     Dates: start: 20200916, end: 20200918
  6. SODIUM CHLORIDE. [Concomitant]
     Active Substance: SODIUM CHLORIDE
     Indication: OVARIAN CANCER
     Dosage: 100 MILLILITER, QD
     Route: 042
     Dates: start: 20200927, end: 20200927
  7. BETMIGA [Concomitant]
     Active Substance: MIRABEGRON
     Indication: NEUROGENIC BLADDER
     Dosage: UNK UNK, QD
     Route: 048
     Dates: start: 20180823
  8. WINUF PERI [Concomitant]
     Active Substance: AMINO ACIDS\DEXTROSE\ELECTROLYTES NOS\SOYBEAN OIL\VITAMINS
     Indication: OVARIAN CANCER
     Dosage: 654 MILLILITER, QD
     Route: 042
     Dates: start: 20201005, end: 20201007
  9. BEAROBAN [Concomitant]
     Indication: SKIN MASS
     Dosage: 10 GRAM, TID
     Route: 062
     Dates: start: 20201005, end: 20201013
  10. MAXIPIME [Concomitant]
     Active Substance: CEFEPIME HYDROCHLORIDE
     Indication: OVARIAN CANCER
     Dosage: UNK UNK, TID
     Route: 042
     Dates: start: 20201012, end: 20201012
  11. MAGMIL [Concomitant]
     Active Substance: MAGNESIUM HYDROXIDE
     Indication: GASTRITIS
     Dosage: UNK UNK, QD
     Route: 048
     Dates: start: 20200918, end: 20201011
  12. SIMETHICONE (DIMETHICONE) [Concomitant]
     Active Substance: DIMETHICONE
     Indication: GASTRITIS
     Dosage: UNK UNK, QD
     Route: 048
     Dates: start: 20200918, end: 20201011
  13. CEFAZOLINE [Concomitant]
     Active Substance: CEFAZOLIN SODIUM
     Indication: OVARIAN CANCER
     Dosage: UNK, TID
     Route: 042
     Dates: start: 20201005, end: 20201010
  14. NADOXOL [Concomitant]
     Indication: OVARIAN CANCER
     Dosage: UNK, QD
     Route: 042
     Dates: start: 20201006, end: 20201006
  15. TAZOPERAN [Concomitant]
     Indication: OVARIAN CANCER
     Dosage: UNK UNK, TID
     Route: 042
     Dates: start: 20201011, end: 20201011
  16. FEROBA [Concomitant]
     Active Substance: FERROUS SULFATE\PROTEASE
     Indication: ANAEMIA
     Dosage: UNK UNK, BID
     Route: 048
     Dates: start: 20200916, end: 20200918
  17. FERRIC CARBOXYMALTOSE [Concomitant]
     Active Substance: FERRIC CARBOXYMALTOSE
     Indication: OVARIAN CANCER
     Dosage: UNK, QD
     Route: 042
     Dates: start: 20201005, end: 20201005
  18. BOLGRE [Concomitant]
     Indication: OVARIAN CANCER
     Dosage: UNK, BID
     Route: 048
     Dates: start: 20201005, end: 20201011
  19. GASTER [Concomitant]
     Active Substance: FAMOTIDINE
     Indication: GASTRITIS
     Dosage: UNK
     Route: 048
     Dates: start: 20200918, end: 20201011
  20. SODIUM CHLORIDE. [Concomitant]
     Active Substance: SODIUM CHLORIDE
     Dosage: 1000 MILLILITER, QD
     Route: 042
     Dates: start: 20201005, end: 20201013
  21. XYZAL [Concomitant]
     Active Substance: LEVOCETIRIZINE DIHYDROCHLORIDE
     Indication: OVARIAN CANCER
     Dosage: UNK, QD
     Route: 048
     Dates: start: 20201005, end: 20201011
  22. KEROMIN [Concomitant]
     Indication: OVARIAN CANCER
     Dosage: UNK
     Route: 042
     Dates: start: 20201007, end: 20201007
  23. KEROMIN [Concomitant]
     Dosage: UNK
     Route: 042
     Dates: start: 20201010, end: 20201010
  24. NIRAPARIB [Suspect]
     Active Substance: NIRAPARIB
     Indication: OVARIAN CANCER
  25. LASIX [Concomitant]
     Active Substance: FUROSEMIDE
     Indication: PRODUCT USED FOR UNKNOWN INDICATION
     Dosage: UNK UNK, BID
     Route: 048
     Dates: start: 20200917
  26. DEXTROSE. [Concomitant]
     Active Substance: DEXTROSE
     Indication: DIZZINESS
     Dosage: 500 MILLILITER, QD
     Route: 042
     Dates: start: 20200927, end: 20200927
  27. SODIUM CHLORIDE. [Concomitant]
     Active Substance: SODIUM CHLORIDE
     Indication: DIZZINESS
     Dosage: 100 MILLILITER, QD
     Route: 042
     Dates: start: 20200927, end: 20200927

REACTIONS (1)
  - Ovarian cancer [Fatal]

NARRATIVE: CASE EVENT DATE: 20201005
